FAERS Safety Report 4877676-8 (Version None)
Quarter: 2005Q4

REPORT INFORMATION
  Report Type: 
  Country: None (occurrence: None)
  Receive Date: 20051206
  Receipt Date: 20050922
  Transmission Date: 20060501
  Serious: No
  Sender: FDA-Public Use
  Company Number: USA0509109041

PATIENT
  Age: 55 Year
  Sex: Female

DRUGS (3)
  1. CYMBALTA [Suspect]
     Indication: PAIN
     Dosage: 60 MG DAY
  2. REGLAN [Concomitant]
  3. NEURONTIN [Concomitant]

REACTIONS (4)
  - CHEST DISCOMFORT [None]
  - HEADACHE [None]
  - HOT FLUSH [None]
  - PALPITATIONS [None]
